FAERS Safety Report 9690282 (Version 1)
Quarter: 2013Q4

REPORT INFORMATION
  Report Type: Spontaneous
  Country: CH (occurrence: None)
  Receive Date: 20131113
  Receipt Date: 20131113
  Transmission Date: 20140711
  Serious: Yes (Hospitalization)
  Sender: FDA-Public Use
  Company Number: 2013000303

PATIENT
  Age: 77 Year
  Sex: Male
  Weight: 63 kg

DRUGS (12)
  1. ACEON [Suspect]
     Indication: MYOCARDIAL ISCHAEMIA
     Route: 048
  2. DIGOXIN (DIGOXIN) [Suspect]
     Indication: MYOCARDIAL ISCHAEMIA
     Route: 048
     Dates: end: 20130906
  3. AMIODARONE (AMIODARONE) [Suspect]
     Indication: MYOCARDIAL ISCHAEMIA
     Route: 048
     Dates: start: 20130706
  4. ALDACTONE A (SPIRONOLACTONE) [Suspect]
     Indication: MYOCARDIAL ISCHAEMIA
     Route: 048
     Dates: end: 20130906
  5. TOREM (TORASEMIDE) [Suspect]
     Indication: MYOCARDIAL ISCHAEMIA
     Route: 048
  6. METOPROLOL (METOPROLOL) [Suspect]
     Indication: MYOCARDIAL ISCHAEMIA
     Route: 048
     Dates: end: 20130906
  7. DORMICUM (NITRAZEPAM) (NITRAZEPAM) [Suspect]
     Indication: INSOMNIA
     Route: 048
  8. ASPIRIN CARDIO (ACETYLSALICYLIC ACID) [Concomitant]
  9. ATORVASTATIN (ATORVASTATIN) [Concomitant]
  10. ESOMEPRAZOLE (ESOMEPRAZOLE) [Concomitant]
  11. SPIRIVA (TIOTROPIUM BROMIDE) (TIOTROPIUM BROMIDE) [Concomitant]
  12. SEREVENT (SALMETEROL XINAFOATE) [Concomitant]

REACTIONS (8)
  - Nausea [None]
  - Dehydration [None]
  - Accidental overdose [None]
  - Renal failure acute [None]
  - Hyperkalaemia [None]
  - Hypotension [None]
  - Orthostatic hypotension [None]
  - Fall [None]
